FAERS Safety Report 14159395 (Version 1)
Quarter: 2017Q4

REPORT INFORMATION
  Report Type: Spontaneous
  Country: RU (occurrence: RU)
  Receive Date: 20171103
  Receipt Date: 20171103
  Transmission Date: 20180321
  Serious: Yes (Other)
  Sender: FDA-Public Use
  Company Number: RU-BAYER-2017-212385

PATIENT
  Age: 74 Year
  Sex: Male

DRUGS (1)
  1. ULTRAVIST [Suspect]
     Active Substance: IOPROMIDE
     Dosage: 70 ML, ONCE (0-3.0 ML / SEC)
     Route: 042
     Dates: start: 2017, end: 2017

REACTIONS (1)
  - Angioedema [None]

NARRATIVE: CASE EVENT DATE: 2017
